FAERS Safety Report 23033797 (Version 1)
Quarter: 2023Q4

REPORT INFORMATION
  Report Type: Spontaneous
  Country: US (occurrence: US)
  Receive Date: 20231005
  Receipt Date: 20231005
  Transmission Date: 20240110
  Serious: No
  Sender: FDA-Public Use
  Company Number: US-VERTEX PHARMACEUTICALS-2023-014495

PATIENT
  Age: 7 Year

DRUGS (1)
  1. TRIKAFTA [Suspect]
     Active Substance: ELEXACAFTOR\IVACAFTOR\TEZACAFTOR
     Indication: Cystic fibrosis
     Dosage: UNK
     Route: 048

REACTIONS (5)
  - Mental disorder [Unknown]
  - Gastrointestinal obstruction [Unknown]
  - Nervous system disorder [Unknown]
  - Myoclonus [Unknown]
  - Acne [Unknown]
